FAERS Safety Report 8488047-X (Version None)
Quarter: 2012Q3

REPORT INFORMATION
  Report Type: 
  Country: None (occurrence: None)
  Receive Date: 20120705
  Receipt Date: 20120621
  Transmission Date: 20120928
  Serious: Yes (Hospitalization)
  Sender: FDA-Public Use
  Company Number: JP-CELGENEUS-087-50794-12063668

PATIENT
  Sex: Female
  Weight: 56 kg

DRUGS (15)
  1. LEVOFLOXACIN [Concomitant]
     Route: 065
     Dates: start: 20111115
  2. POLARAMINE [Concomitant]
     Route: 065
     Dates: start: 20120110, end: 20120111
  3. POLARAMINE [Concomitant]
     Route: 065
     Dates: start: 20120206, end: 20120212
  4. SULFAMETHOXAZOLE AND TRIMETHOPRIM [Concomitant]
     Route: 065
     Dates: start: 20111115
  5. SOLU-CORTEF [Concomitant]
     Route: 065
     Dates: start: 20120107
  6. DIFLUCAN [Concomitant]
     Route: 065
     Dates: start: 20111115
  7. TRANSFUSION [Concomitant]
     Route: 041
  8. NEOPHAGEN [Concomitant]
     Route: 065
     Dates: start: 20120107
  9. VIDAZA [Suspect]
     Dosage: 75 MILLIGRAM/SQ. METER
     Route: 041
     Dates: start: 20120206, end: 20120212
  10. VIDAZA [Suspect]
     Dosage: 75 MILLIGRAM/SQ. METER
     Route: 041
     Dates: start: 20120105, end: 20120111
  11. PROMACTA [Concomitant]
     Route: 065
     Dates: start: 20111115
  12. ALLOPURINOL [Concomitant]
     Route: 065
     Dates: start: 20111115
  13. OVULANZE [Concomitant]
     Route: 065
     Dates: start: 20111115
  14. RAMELTEON [Concomitant]
     Route: 065
     Dates: start: 20120105, end: 20120111
  15. SOLU-CORTEF [Concomitant]
     Route: 065
     Dates: start: 20120206

REACTIONS (4)
  - URTICARIA [None]
  - ASPARTATE AMINOTRANSFERASE INCREASED [None]
  - BLOOD ALKALINE PHOSPHATASE INCREASED [None]
  - ALANINE AMINOTRANSFERASE INCREASED [None]
